FAERS Safety Report 5056534-2 (Version None)
Quarter: 2006Q3

REPORT INFORMATION
  Report Type: 
  Country: None (occurrence: None)
  Receive Date: 20060720
  Receipt Date: 20060421
  Transmission Date: 20061208
  Serious: Yes (Disabling)
  Sender: FDA-Public Use
  Company Number: FR-ABBOTT-06P-056-0331609-00

PATIENT
  Sex: Male
  Weight: 62.5 kg

DRUGS (4)
  1. HUMIRA [Suspect]
     Indication: PSORIATIC ARTHROPATHY
     Route: 058
     Dates: start: 20051107, end: 20060305
  2. NIMESULIDE [Concomitant]
     Indication: PSORIATIC ARTHROPATHY
  3. THIAMINE CHLORHYDRATE, QUININE BENZOATE [Concomitant]
     Indication: MUSCLE SPASMS
  4. DESLORATADINE [Concomitant]
     Indication: ARTHRALGIA

REACTIONS (1)
  - RESTLESS LEGS SYNDROME [None]
